FAERS Safety Report 5635805-2 (Version None)
Quarter: 2008Q1

REPORT INFORMATION
  Report Type: 
  Country: None (occurrence: None)
  Receive Date: 20080221
  Receipt Date: 20080211
  Transmission Date: 20080703
  Serious: Yes (Hospitalization)
  Sender: FDA-Public Use
  Company Number: 056-21880-08020603

PATIENT
  Age: 73 Year
  Sex: Male

DRUGS (2)
  1. REVLIMID [Suspect]
     Indication: MULTIPLE MYELOMA
     Dosage: ORAL
     Route: 048
     Dates: start: 20071112
  2. DEXAMETHASONE TAB [Concomitant]

REACTIONS (6)
  - DEEP VEIN THROMBOSIS [None]
  - HAEMATURIA [None]
  - PHLEBITIS [None]
  - PLATELET COUNT DECREASED [None]
  - PULMONARY EMBOLISM [None]
  - RENAL COLIC [None]
